FAERS Safety Report 18716035 (Version 1)
Quarter: 2021Q1

REPORT INFORMATION
  Report Type: Spontaneous
  Country: FR (occurrence: FR)
  Receive Date: 20210108
  Receipt Date: 20210108
  Transmission Date: 20210419
  Serious: Yes (Hospitalization)
  Sender: FDA-Public Use
  Company Number: FR-ACCORD-213828

PATIENT
  Age: 72 Year
  Sex: Female
  Weight: 39 kg

DRUGS (3)
  1. CARBOPLATIN ACCORD [Suspect]
     Active Substance: CARBOPLATIN
     Indication: LUNG ADENOCARCINOMA
     Route: 042
     Dates: start: 20200909, end: 20201001
  2. ALIMTA [Suspect]
     Active Substance: PEMETREXED DISODIUM
     Indication: LUNG ADENOCARCINOMA
     Route: 042
     Dates: start: 20200909, end: 20201001
  3. KEYTRUDA [Suspect]
     Active Substance: PEMBROLIZUMAB
     Indication: LUNG ADENOCARCINOMA
     Route: 042
     Dates: start: 20200514, end: 20200806

REACTIONS (2)
  - Oral lichen planus [Not Recovered/Not Resolved]
  - Hepatitis [Not Recovered/Not Resolved]

NARRATIVE: CASE EVENT DATE: 20201001
